FAERS Safety Report 9305022 (Version 2)
Quarter: 2013Q2

REPORT INFORMATION
  Report Type: Spontaneous
  Country: US (occurrence: None)
  Receive Date: 20130521
  Receipt Date: 20130619
  Transmission Date: 20140414
  Serious: Yes (Other)
  Sender: FDA-Public Use
  Company Number: JPI-P-031704

PATIENT
  Age: 40 Year
  Sex: Male

DRUGS (1)
  1. XYREM [Suspect]
     Indication: NARCOLEPSY
     Dosage: 3 GM (1.5 GM,2 IN 1 D)
     Route: 048
     Dates: start: 20120919

REACTIONS (2)
  - Gout [None]
  - Joint swelling [None]
